FAERS Safety Report 12393442 (Version 1)
Quarter: 2016Q2

REPORT INFORMATION
  Report Type: Spontaneous
  Country: CH (occurrence: CH)
  Receive Date: 20160523
  Receipt Date: 20160523
  Transmission Date: 20160815
  Serious: Yes (Other)
  Sender: FDA-Public Use
  Company Number: CH-GLAXOSMITHKLINE-CH2016069766

PATIENT
  Age: 46 Year
  Sex: Female
  Weight: 70 kg

DRUGS (24)
  1. MARCOUMAR [Concomitant]
     Active Substance: PHENPROCOUMON
     Dosage: UNK
  2. METOLAZON [Concomitant]
     Active Substance: METOLAZONE
     Dosage: 5 MG, QD
  3. REMERON [Concomitant]
     Active Substance: MIRTAZAPINE
     Indication: DEPRESSION
     Dosage: 30 MG, QD
     Route: 048
  4. VI-DE 3 [Concomitant]
     Active Substance: CHOLECALCIFEROL
     Indication: OSTEOPOROSIS PROPHYLAXIS
     Dosage: 20 GTT, QD
  5. NEPHROTRANS [Concomitant]
     Indication: ACIDOSIS
     Dosage: 1 G, UNK
  6. TOREM [Concomitant]
     Active Substance: TORSEMIDE
     Dosage: 30 MG, QD
  7. NOVALGIN TABLET (METAMIZOLE SODIUM) [Concomitant]
     Dosage: 500 MG, UNK
  8. MYFORTIC [Concomitant]
     Active Substance: MYCOPHENOLATE SODIUM
     Indication: PROPHYLAXIS AGAINST TRANSPLANT REJECTION
     Dosage: 360 MG, BID
     Route: 048
  9. SPIRICORT [Concomitant]
     Active Substance: PREDNISOLONE
     Indication: PROPHYLAXIS AGAINST TRANSPLANT REJECTION
     Dosage: 5 MG, QD
  10. APROVEL [Concomitant]
     Active Substance: IRBESARTAN
     Indication: PROTEINURIA
     Dosage: 150 MG, QD
     Route: 048
  11. NEURONTIN [Concomitant]
     Active Substance: GABAPENTIN
     Dosage: 100 MG, TID
     Route: 048
  12. OXYNORM [Suspect]
     Active Substance: OXYCODONE HYDROCHLORIDE
     Indication: NEURALGIA
     Dosage: 2 MG, UNK
     Route: 048
     Dates: start: 20160419
  13. BELOC ZOK RETARDTABLETTEN [Concomitant]
     Active Substance: METOPROLOL SUCCINATE
     Indication: ATRIAL FIBRILLATION
     Dosage: 50 MG, BID
  14. DUROGESIC [Suspect]
     Active Substance: FENTANYL
     Indication: NEURALGIA
     Dosage: UNK
     Route: 062
  15. ZOVIRAX [Suspect]
     Active Substance: ACYCLOVIR
     Indication: HERPES ZOSTER
     Dosage: 800 MG, TID
     Route: 065
     Dates: start: 20160420, end: 20160422
  16. LAXOBERON [Concomitant]
     Active Substance: SODIUM PICOSULFATE
     Indication: CONSTIPATION PROPHYLAXIS
     Dosage: 10 GTT, QD
     Route: 048
  17. BACTRIM [Concomitant]
     Active Substance: SULFAMETHOXAZOLE\TRIMETHOPRIM
     Indication: ANTIFUNGAL PROPHYLAXIS
     Dosage: 0.5 DF, QD
     Route: 048
  18. NALOXON [Concomitant]
     Indication: CONSTIPATION PROPHYLAXIS
     Dosage: UNK
     Route: 048
  19. TARGIN [Suspect]
     Active Substance: NALOXONE HYDROCHLORIDE\OXYCODONE HYDROCHLORIDE
     Indication: NEURALGIA
     Dosage: 10 MG, BID
     Route: 048
     Dates: start: 20160419
  20. PROGRAF [Concomitant]
     Active Substance: TACROLIMUS\TACROLIMUS ANHYDROUS
     Indication: PROPHYLAXIS AGAINST TRANSPLANT REJECTION
     Dosage: , 1 MG CAPSULES   2 MG, BID
     Route: 048
  21. PROGRAF [Concomitant]
     Active Substance: TACROLIMUS\TACROLIMUS ANHYDROUS
     Dosage: 0.5 MG, BID ,0,5 MG CAPSULES
     Route: 048
  22. SANDOZ PANTOPRAZOL [Concomitant]
     Indication: GASTROOESOPHAGEAL REFLUX DISEASE
     Dosage: 40 MG, QD
  23. EUTHYROX [Concomitant]
     Active Substance: LEVOTHYROXINE SODIUM
     Indication: HYPOTHYROIDISM
     Dosage: 75 ?G, QD
  24. PRIMPERAN [Concomitant]
     Active Substance: METOCLOPRAMIDE HYDROCHLORIDE
     Dosage: UNK
     Route: 048

REACTIONS (6)
  - Aphasia [Recovering/Resolving]
  - Confusional state [Recovered/Resolved]
  - Drug prescribing error [Recovered/Resolved]
  - Somnolence [Recovering/Resolving]
  - Accidental overdose [Recovered/Resolved]
  - Labelled drug-disease interaction medication error [Recovered/Resolved]

NARRATIVE: CASE EVENT DATE: 20160420
